FAERS Safety Report 4924760-6 (Version None)
Quarter: 2006Q1

REPORT INFORMATION
  Report Type: 
  Country: None (occurrence: None)
  Receive Date: 20060222
  Receipt Date: 20060208
  Transmission Date: 20060701
  Serious: Yes (Hospitalization)
  Sender: FDA-Public Use
  Company Number: CIP05003048

PATIENT
  Age: 84 Year
  Sex: Female
  Weight: 73 kg

DRUGS (3)
  1. ACTONEL [Suspect]
     Indication: OSTEOPOROSIS
     Dosage: 35 MG ONCE WEEKLY, ORAL
     Route: 048
  2. CALCIUM (CALCIUM) [Concomitant]
  3. VITAMIN D (ERRGOCALCIFEROL) [Concomitant]

REACTIONS (10)
  - ARTHROPATHY [None]
  - BONE MARROW OEDEMA [None]
  - COMPRESSION FRACTURE [None]
  - CYST [None]
  - HAEMANGIOMA [None]
  - INTERVERTEBRAL DISC DEGENERATION [None]
  - LYMPHOID TISSUE HYPERPLASIA [None]
  - SCOLIOSIS [None]
  - THORACIC VERTEBRAL FRACTURE [None]
  - WALKING AID USER [None]
